FAERS Safety Report 6372552-6 (Version None)
Quarter: 2009Q3

REPORT INFORMATION
  Report Type: 
  Country: None (occurrence: None)
  Receive Date: 20090924
  Receipt Date: 20080925
  Transmission Date: 20100115
  Serious: Yes (Other)
  Sender: FDA-Public Use
  Company Number: US-ASTRAZENECA-2008UW20345

PATIENT
  Age: 30 Year
  Sex: Male

DRUGS (3)
  1. SEROQUEL [Suspect]
     Dosage: 1200
     Route: 048
  2. ZYPREXA [Suspect]
     Dosage: 20
  3. HALOPERIDOL DECANOATE [Suspect]

REACTIONS (1)
  - BLOOD GLUCOSE INCREASED [None]
